FAERS Safety Report 22084718 (Version 1)
Quarter: 2023Q1

REPORT INFORMATION
  Report Type: Report from Study
  Country: FR (occurrence: FR)
  Receive Date: 20230310
  Receipt Date: 20230310
  Transmission Date: 20230418
  Serious: Yes (Other)
  Sender: FDA-Public Use
  Company Number: FR-SERVIER-S21004710

PATIENT

DRUGS (7)
  1. PEGASPARGASE [Suspect]
     Active Substance: PEGASPARGASE
     Indication: Acute lymphocytic leukaemia
     Dosage: 3030 IU, ON D8, D36
     Route: 042
     Dates: start: 20210126
  2. PEGASPARGASE [Suspect]
     Active Substance: PEGASPARGASE
     Dosage: 1000 IU/M? ON D64
     Route: 042
  3. VINCRISTINE SULFATE [Suspect]
     Active Substance: VINCRISTINE SULFATE
     Indication: Acute lymphocytic leukaemia
     Dosage: 1.8 MG ON D18, D29, D36, D57, D64
     Route: 042
     Dates: start: 20210119
  4. METHOTREXATE [Suspect]
     Active Substance: METHOTREXATE
     Indication: Acute lymphocytic leukaemia
     Dosage: 12 MG ON D8, D30, D58
     Route: 037
     Dates: start: 20210120
  5. METHOTREXATE [Suspect]
     Active Substance: METHOTREXATE
     Dosage: 30 MG ON D8, D15, D22, D36, D43, D50, D64, D71, D78
     Route: 048
     Dates: start: 20210126
  6. DEXAMETHASONE [Suspect]
     Active Substance: DEXAMETHASONE
     Indication: Acute lymphocytic leukaemia
     Dosage: 7 MG ON D1 TO D5, D29 TO D33, D57 TO D61
     Route: 048
     Dates: start: 20210119
  7. MERCAPTOPURINE [Suspect]
     Active Substance: MERCAPTOPURINE
     Indication: Acute lymphocytic leukaemia
     Dosage: 50 MG ON D1 TO D21, D29 TO D49, AND D57 TO D77
     Route: 048
     Dates: start: 20210119

REACTIONS (2)
  - Hypertriglyceridaemia [Recovered/Resolved]
  - Cholestasis [Recovered/Resolved]

NARRATIVE: CASE EVENT DATE: 20210304
